FAERS Safety Report 4500674-0 (Version None)
Quarter: 2004Q4

REPORT INFORMATION
  Report Type: 
  Country: None (occurrence: None)
  Receive Date: 20041109
  Receipt Date: 20041026
  Transmission Date: 20050328
  Serious: Yes (Hospitalization, Other)
  Sender: FDA-Public Use
  Company Number: USA041082290

PATIENT
  Age: 53 Year
  Sex: Female
  Weight: 91 kg

DRUGS (3)
  1. HUMULIN 70/30 [Suspect]
     Indication: DIABETES MELLITUS
     Dosage: 145 U DAY
  2. HUMULIN N [Suspect]
     Indication: DIABETES MELLITUS
     Dates: start: 19921010
  3. HUMULIN R [Suspect]
     Indication: DIABETES MELLITUS
     Dates: start: 19921010

REACTIONS (4)
  - ARTHRITIS [None]
  - CHONDROPATHY [None]
  - DEAFNESS UNILATERAL [None]
  - JOINT PROSTHESIS USER [None]
